FAERS Safety Report 4692747-7 (Version None)
Quarter: 2005Q2

REPORT INFORMATION
  Report Type: 
  Country: None (occurrence: None)
  Receive Date: 20050617
  Receipt Date: 20050603
  Transmission Date: 20051028
  Serious: Yes (Other)
  Sender: FDA-Public Use
  Company Number: FR-GLAXOSMITHKLINE-B0384068A

PATIENT
  Age: 74 Year
  Sex: Female

DRUGS (7)
  1. AVANDAMET [Suspect]
     Dosage: 2TAB TWICE PER DAY
     Route: 048
     Dates: start: 20050215, end: 20050325
  2. NOVONORM [Concomitant]
     Route: 048
  3. LOZOL [Concomitant]
     Route: 048
  4. TAREG [Concomitant]
     Route: 048
  5. HYPERIUM [Concomitant]
     Route: 048
  6. LODALES [Concomitant]
     Route: 048
  7. ALLOPURINOL [Concomitant]
     Indication: GOUT
     Route: 048

REACTIONS (2)
  - ARRHYTHMIA [None]
  - CARDIAC FAILURE [None]
